FAERS Safety Report 9316275 (Version 1)
Quarter: 2013Q2

REPORT INFORMATION
  Report Type: Spontaneous
  Country: US (occurrence: None)
  Receive Date: 20130522
  Receipt Date: 20130522
  Transmission Date: 20140414
  Serious: Yes (Hospitalization)
  Sender: FDA-Public Use
  Company Number: UTC-032637

PATIENT
  Age: 58 Year
  Sex: Female
  Weight: 91.86 kg

DRUGS (3)
  1. REMODULIN [Suspect]
     Indication: PULMONARY ARTERIAL HYPERTENSION
     Dosage: 0.084 UG/KG, 1 IN 1 MIN
     Route: 058
     Dates: start: 20120825
  2. COUMADIN (WARFARIN SODIUM) (UNKNOWN) [Concomitant]
  3. CIALIS (TADALAFIL) (UNKNOWN) [Concomitant]

REACTIONS (4)
  - Hypotension [None]
  - Malaise [None]
  - Device breakage [None]
  - Drug dose omission [None]
